FAERS Safety Report 17166152 (Version 2)
Quarter: 2020Q1

REPORT INFORMATION
  Report Type: Spontaneous
  Country: US (occurrence: US)
  Receive Date: 20191217
  Receipt Date: 20200228
  Transmission Date: 20200409
  Serious: Yes (Other)
  Sender: FDA-Public Use
  Company Number: US-SA-2019SA346592

PATIENT
  Age: 35 Year
  Sex: Female
  Weight: 99.79 kg

DRUGS (5)
  1. TAXOTERE [Suspect]
     Active Substance: DOCETAXEL
     Indication: BREAST CANCER FEMALE
     Dosage: 129 MG, Q3W
     Route: 042
     Dates: start: 201109, end: 201109
  2. ADRIAMYCIN [Concomitant]
     Active Substance: DOXORUBICIN HYDROCHLORIDE
     Indication: BREAST CANCER FEMALE
     Route: 065
  3. NEOSAR [Concomitant]
     Active Substance: CYCLOPHOSPHAMIDE
     Indication: BREAST CANCER FEMALE
     Route: 065
  4. TAXOTERE [Suspect]
     Active Substance: DOCETAXEL
     Dosage: 129 MG, Q3W
     Route: 042
     Dates: start: 20111215, end: 20111215
  5. CYTOXAN [Concomitant]
     Active Substance: CYCLOPHOSPHAMIDE
     Indication: BREAST CANCER FEMALE
     Route: 065

REACTIONS (1)
  - Alopecia [Recovering/Resolving]

NARRATIVE: CASE EVENT DATE: 2011
